FAERS Safety Report 24308181 (Version 1)
Quarter: 2024Q3

REPORT INFORMATION
  Report Type: Other
  Country: US (occurrence: US)
  Receive Date: 20240911
  Receipt Date: 20240911
  Transmission Date: 20241016
  Serious: Yes (Hospitalization)
  Sender: SIGMA TAU
  Company Number: US-LEADIANT GMBH-2024LBI000132

PATIENT
  Sex: Male

DRUGS (1)
  1. MATULANE [Suspect]
     Active Substance: PROCARBAZINE HYDROCHLORIDE
     Indication: Brain neoplasm malignant
     Dosage: 50 MILLIGRAMS, 3 CAPSULES (150MG TOTAL) DAILY FOR 2 WEEKS STARTING ON DAY 8 OF CHEMO REGIMEN
     Route: 048
     Dates: start: 20231221

REACTIONS (1)
  - Seizure [Unknown]
